FAERS Safety Report 4805984-5 (Version None)
Quarter: 2005Q4

REPORT INFORMATION
  Report Type: 
  Country: None (occurrence: None)
  Receive Date: 20051019
  Receipt Date: 20051005
  Transmission Date: 20060501
  Serious: Yes (Death)
  Sender: FDA-Public Use
  Company Number: USA040465379

PATIENT
  Age: 78 Year
  Sex: Male

DRUGS (6)
  1. FORTEO [Suspect]
     Indication: OSTEOPOROSIS
     Dosage: UNK
     Route: 065
     Dates: start: 20030501
  2. COUMADIN [Concomitant]
  3. THYROXINE [Concomitant]
  4. TESTOSTERONE [Concomitant]
  5. TRAMADOL [Concomitant]
  6. XOPENEX [Concomitant]

REACTIONS (3)
  - BACK PAIN [None]
  - PHARMACEUTICAL PRODUCT COMPLAINT [None]
  - SUDDEN DEATH [None]
